FAERS Safety Report 24460703 (Version 1)
Quarter: 2024Q4

REPORT INFORMATION
  Report Type: Report from Study
  Country: US (occurrence: US)
  Receive Date: 20241018
  Receipt Date: 20241018
  Transmission Date: 20250115
  Serious: No
  Sender: ROCHE
  Company Number: US-ROCHE-3572839

PATIENT
  Age: 69 Year
  Sex: Female

DRUGS (1)
  1. RITUXAN [Suspect]
     Active Substance: RITUXIMAB
     Indication: Microscopic polyangiitis
     Dosage: MORE DOSAGE INFORMATION IS 500 MG SINGLE-USE VIAL
     Route: 041
     Dates: start: 20230206, end: 20240206

REACTIONS (12)
  - Torticollis [Unknown]
  - Ataxia [Unknown]
  - Aortic aneurysm [Unknown]
  - Palpitations [Unknown]
  - Electrocardiogram abnormal [Unknown]
  - Hyperparathyroidism [Unknown]
  - Goitre [Unknown]
  - Urinary tract infection [Unknown]
  - Osteoporosis [Unknown]
  - Syringomyelia [Unknown]
  - Atrophic vulvovaginitis [Unknown]
  - Large intestine polyp [Unknown]
